FAERS Safety Report 6986752-5 (Version None)
Quarter: 2010Q3

REPORT INFORMATION
  Report Type: 
  Country: None (occurrence: None)
  Receive Date: 20100915
  Receipt Date: 20090727
  Transmission Date: 20110219
  Serious: No
  Sender: FDA-Public Use
  Company Number: US-WYE-H10342509

PATIENT
  Sex: Female
  Weight: 108.51 kg

DRUGS (15)
  1. PRISTIQ [Suspect]
     Indication: DEPRESSION
     Route: 048
     Dates: start: 20090715, end: 20090725
  2. METFORMIN [Concomitant]
  3. APIDRA [Concomitant]
  4. LANTUS [Concomitant]
  5. SEROQUEL [Concomitant]
  6. CLONAZEPAM [Concomitant]
  7. DOXEPIN HCL [Concomitant]
  8. RANITIDINE [Concomitant]
  9. HYDROCODONE BITARTRATE + ACETAMINOPHEN [Concomitant]
  10. ACTONEL [Concomitant]
  11. VERAPAMIL [Concomitant]
  12. ASMANEX TWISTHALER [Concomitant]
  13. BUDESONIDE [Concomitant]
  14. ALBUTEROL [Concomitant]
  15. CORTEF [Concomitant]

REACTIONS (2)
  - ARTHRALGIA [None]
  - PRURITUS [None]
